FAERS Safety Report 9193552 (Version 1)
Quarter: 2013Q1

REPORT INFORMATION
  Report Type: Spontaneous
  Country: US (occurrence: None)
  Receive Date: 20130325
  Receipt Date: 20130325
  Transmission Date: 20140127
  Serious: Yes (Hospitalization)
  Sender: FDA-Public Use
  Company Number: None

PATIENT
  Age: 65 Year
  Sex: Female
  Weight: 58.1 kg

DRUGS (2)
  1. FILGRASTIM [Suspect]
     Indication: NEUTROPENIA
     Route: 058
     Dates: start: 20130321, end: 20130321
  2. PEGFILGRASTIM [Suspect]
     Indication: NEUTROPENIA
     Route: 058
     Dates: start: 20130124, end: 20130124

REACTIONS (1)
  - Ill-defined disorder [None]
